FAERS Safety Report 6173771-4 (Version None)
Quarter: 2009Q2

REPORT INFORMATION
  Report Type: 
  Country: None (occurrence: None)
  Receive Date: 20090429
  Receipt Date: 20090429
  Transmission Date: 20091009
  Serious: Yes (Other)
  Sender: FDA-Public Use
  Company Number: None

PATIENT
  Age: 58 Year
  Sex: Female
  Weight: 81.6475 kg

DRUGS (1)
  1. XENICAL [Suspect]
     Indication: WEIGHT CONTROL
     Dosage: 1 DAILY PO
     Route: 048
     Dates: start: 20090103, end: 20090301

REACTIONS (1)
  - PANCREATITIS [None]
